FAERS Safety Report 23414038 (Version 1)
Quarter: 2024Q1

REPORT INFORMATION
  Report Type: Spontaneous
  Country: US (occurrence: US)
  Receive Date: 20240117
  Receipt Date: 20240117
  Transmission Date: 20240410
  Serious: Yes (Other)
  Sender: FDA-Public Use
  Company Number: US-BAUSCH-BL-2024-000598

PATIENT
  Age: 71 Year
  Sex: Female
  Weight: 41.768 kg

DRUGS (2)
  1. MYSOLINE [Suspect]
     Active Substance: PRIMIDONE
     Indication: Simple partial seizures
     Dosage: FOUR TIMES DAILY, ABOUT 65 YEARS PRIOR
     Route: 048
  2. MYSOLINE [Suspect]
     Active Substance: PRIMIDONE
     Dosage: THREE TIMES DAILY, ABOUT 10 YEARS PRIOR
     Route: 048

REACTIONS (1)
  - Therapeutic product effect decreased [Unknown]
